FAERS Safety Report 23652575 (Version 1)
Quarter: 2024Q1

REPORT INFORMATION
  Report Type: Spontaneous
  Country: AU (occurrence: AU)
  Receive Date: 20240320
  Receipt Date: 20240320
  Transmission Date: 20240409
  Serious: Yes (Hospitalization, Other)
  Sender: FDA-Public Use
  Company Number: AU-SNT-000391

PATIENT
  Age: 67 Year
  Sex: Male

DRUGS (5)
  1. POSACONAZOLE [Suspect]
     Active Substance: POSACONAZOLE
     Indication: Graft versus host disease
     Dosage: 300 MG
     Route: 048
  2. BUDESONIDE [Suspect]
     Active Substance: BUDESONIDE
     Indication: Graft versus host disease
     Dosage: 3 MG TDS
     Route: 065
  3. METHYLPREDNISOLONE [Suspect]
     Active Substance: METHYLPREDNISOLONE
     Indication: Graft versus host disease
     Dosage: 7 DAYS OF IV METHYLPREDNISOLONE?AT 2 MG PER KG AND THEN 5 DAYS OF 1 TO 1.25 MG PER KG
     Route: 042
  4. PREDNISOLONE [Suspect]
     Active Substance: PREDNISOLONE
     Indication: Graft versus host disease
     Dosage: TAPERED EACH WEEK AS 100, 75, 50, 25, 12.5, 10 AND 5 MG?AND CEASED
     Route: 048
     Dates: start: 202302, end: 202303
  5. CYCLOSPORINE [Suspect]
     Active Substance: CYCLOSPORINE
     Indication: Graft versus host disease
     Dosage: 200 MG BD
     Route: 065
     Dates: end: 202303

REACTIONS (6)
  - Cushing^s syndrome [Recovered/Resolved]
  - Tertiary adrenal insufficiency [Recovered/Resolved]
  - Metastases to meninges [Unknown]
  - Orthostatic hypotension [Unknown]
  - Type 2 diabetes mellitus [Unknown]
  - Cytomegalovirus infection reactivation [Unknown]

NARRATIVE: CASE EVENT DATE: 20230501
